FAERS Safety Report 5238215-5 (Version None)
Quarter: 2007Q1

REPORT INFORMATION
  Report Type: 
  Country: None (occurrence: None)
  Receive Date: 20061208
  Receipt Date: 20050523
  Transmission Date: 20070707
  Serious: Yes (Other)
  Sender: FDA-Public Use
  Company Number: 2005UW07931

PATIENT
  Age: 76 Year
  Sex: Male
  Weight: 90.718 kg

DRUGS (4)
  1. CRESTOR [Suspect]
     Dosage: 10 MG DAILY PO
     Route: 048
     Dates: start: 20050401
  2. ENALAPRIL MALEATE [Concomitant]
  3. TERAZOSIN HCL [Concomitant]
  4. ASPIRIN [Concomitant]

REACTIONS (2)
  - HOT FLUSH [None]
  - PARAESTHESIA [None]
